FAERS Safety Report 12177905 (Version 3)
Quarter: 2016Q3

REPORT INFORMATION
  Report Type: Spontaneous
  Country: US (occurrence: US)
  Receive Date: 20160314
  Receipt Date: 20160808
  Transmission Date: 20161109
  Serious: Yes (Disabling, Other)
  Sender: FDA-Public Use
  Company Number: US-REGENERON PHARMACEUTICALS, INC.-2016-13518

PATIENT

DRUGS (5)
  1. EYLEA [Suspect]
     Active Substance: AFLIBERCEPT
     Dosage: 2 MG MILLIGRAM(S), EVERY 4 TO 6 WEEKS, OD
     Route: 031
     Dates: start: 20150921, end: 20150921
  2. EYLEA [Suspect]
     Active Substance: AFLIBERCEPT
     Indication: DIABETIC RETINAL OEDEMA
     Dosage: 2 MG MILLIGRAM(S), EVERY 4 TO 6 WEEKS, OD
     Route: 031
     Dates: start: 20150708, end: 20150708
  3. EYLEA [Suspect]
     Active Substance: AFLIBERCEPT
     Dosage: 2 MG MILLIGRAM(S), EVERY 4 TO 6 WEEKS, OD
     Route: 031
     Dates: start: 20151022, end: 20151022
  4. EYLEA [Suspect]
     Active Substance: AFLIBERCEPT
     Dosage: 2 MG MILLIGRAM(S), EVERY 4 TO 6 WEEKS, OD
     Route: 031
     Dates: start: 20151204, end: 20151204
  5. EYLEA [Suspect]
     Active Substance: AFLIBERCEPT
     Dosage: 2 MG MILLIGRAM(S), EVERY 4 TO 6 WEEKS, OD
     Route: 031
     Dates: start: 20160107, end: 20160107

REACTIONS (5)
  - Blindness [Not Recovered/Not Resolved]
  - Vision blurred [Not Recovered/Not Resolved]
  - Visual impairment [Not Recovered/Not Resolved]
  - Drug ineffective [Not Recovered/Not Resolved]
  - Fibrosis [Not Recovered/Not Resolved]

NARRATIVE: CASE EVENT DATE: 20150708
